FAERS Safety Report 18028690 (Version 2)
Quarter: 2020Q3

REPORT INFORMATION
  Report Type: Spontaneous
  Country: US (occurrence: US)
  Receive Date: 20200716
  Receipt Date: 20200724
  Transmission Date: 20201103
  Serious: Yes (Other)
  Sender: FDA-Public Use
  Company Number: US-ASTRAZENECA-2020SE88747

PATIENT
  Age: 18633 Day
  Sex: Female

DRUGS (25)
  1. CITALOPRAM [Concomitant]
     Active Substance: CITALOPRAM HYDROBROMIDE
  2. XANAX [Concomitant]
     Active Substance: ALPRAZOLAM
  3. ESCITALOPRAM [Concomitant]
     Active Substance: ESCITALOPRAM OXALATE
  4. COLACE [Concomitant]
     Active Substance: DOCUSATE SODIUM
  5. NOVOLOG [Concomitant]
     Active Substance: INSULIN ASPART
  6. TRICOR [Concomitant]
     Active Substance: FENOFIBRATE
  7. VITAMIN D [Concomitant]
     Active Substance: VITAMIN D NOS
  8. ALBUTEROL. [Concomitant]
     Active Substance: ALBUTEROL
  9. NEXIUM [Suspect]
     Active Substance: ESOMEPRAZOLE MAGNESIUM
     Route: 048
     Dates: start: 2008
  10. TYLENOL [Concomitant]
     Active Substance: ACETAMINOPHEN
  11. LISINOPRIL. [Concomitant]
     Active Substance: LISINOPRIL
  12. ALLEGRA [Concomitant]
     Active Substance: FEXOFENADINE HYDROCHLORIDE
  13. PREDNISONE. [Concomitant]
     Active Substance: PREDNISONE
  14. GLUCOSE [Concomitant]
     Active Substance: DEXTROSE
  15. MUCINEX [Concomitant]
     Active Substance: GUAIFENESIN
  16. LOVASTATIN. [Concomitant]
     Active Substance: LOVASTATIN
  17. TOUJEO [Concomitant]
     Active Substance: INSULIN GLARGINE
  18. BUPROPION. [Concomitant]
     Active Substance: BUPROPION
  19. LANTUS [Concomitant]
     Active Substance: INSULIN GLARGINE
  20. ALENDRONATE [Concomitant]
     Active Substance: ALENDRONATE SODIUM
  21. NEXIUM [Suspect]
     Active Substance: ESOMEPRAZOLE MAGNESIUM
     Route: 048
  22. SINGULAIR [Concomitant]
     Active Substance: MONTELUKAST SODIUM
  23. SYMBICORT [Concomitant]
     Active Substance: BUDESONIDE\FORMOTEROL FUMARATE DIHYDRATE
  24. LASIX [Concomitant]
     Active Substance: FUROSEMIDE
  25. METFORMIN [Concomitant]
     Active Substance: METFORMIN HYDROCHLORIDE

REACTIONS (5)
  - Renal failure [Unknown]
  - Rebound acid hypersecretion [Unknown]
  - Chronic kidney disease [Unknown]
  - Acute kidney injury [Unknown]
  - Hyperkalaemia [Unknown]

NARRATIVE: CASE EVENT DATE: 20110609
